FAERS Safety Report 10217860 (Version 10)
Quarter: 2015Q2

REPORT INFORMATION
  Report Type: Report from Study
  Country: CA (occurrence: CA)
  Receive Date: 20140605
  Receipt Date: 20150526
  Transmission Date: 20150821
  Serious: Yes (Hospitalization, Other)
  Sender: FDA-Public Use
  Company Number: CA-ROCHE-1123878

PATIENT
  Age: 55 Year
  Sex: Male
  Weight: 70 kg

DRUGS (21)
  1. ACTEMRA [Suspect]
     Active Substance: TOCILIZUMAB
     Route: 042
     Dates: start: 20110117
  2. ACTEMRA [Suspect]
     Active Substance: TOCILIZUMAB
     Route: 042
     Dates: start: 20120620
  3. ACTEMRA [Suspect]
     Active Substance: TOCILIZUMAB
     Route: 042
     Dates: start: 20110215
  4. METHOTREXATE [Suspect]
     Active Substance: METHOTREXATE
     Indication: PRODUCT USED FOR UNKNOWN INDICATION
     Route: 065
     Dates: start: 20030401
  5. ACTEMRA [Suspect]
     Active Substance: TOCILIZUMAB
     Indication: RHEUMATOID ARTHRITIS
     Route: 042
     Dates: start: 20101221
  6. NORVASC [Suspect]
     Active Substance: AMLODIPINE BESYLATE
     Indication: HYPERTENSION
     Route: 065
  7. NORVASC [Suspect]
     Active Substance: AMLODIPINE BESYLATE
     Indication: BLOOD PRESSURE
  8. ACTEMRA [Suspect]
     Active Substance: TOCILIZUMAB
     Route: 042
     Dates: start: 20121115
  9. ACTEMRA [Suspect]
     Active Substance: TOCILIZUMAB
     Indication: RHEUMATOID ARTHRITIS
     Route: 058
     Dates: start: 20141117
  10. FOLIC ACID. [Concomitant]
     Active Substance: FOLIC ACID
  11. ACTEMRA [Suspect]
     Active Substance: TOCILIZUMAB
     Route: 042
     Dates: start: 20110510
  12. ACTEMRA [Suspect]
     Active Substance: TOCILIZUMAB
     Route: 042
     Dates: start: 20110412
  13. CLONAZEPAM. [Concomitant]
     Active Substance: CLONAZEPAM
  14. HYDRODIURIL [Concomitant]
     Active Substance: HYDROCHLOROTHIAZIDE
     Indication: BLOOD PRESSURE
  15. MOBICOX [Concomitant]
     Active Substance: MELOXICAM
  16. ACTEMRA [Suspect]
     Active Substance: TOCILIZUMAB
     Route: 042
     Dates: start: 20110315
  17. ACTEMRA [Suspect]
     Active Substance: TOCILIZUMAB
     Route: 042
     Dates: start: 20121015
  18. ACTEMRA [Suspect]
     Active Substance: TOCILIZUMAB
     Route: 042
     Dates: start: 20140210, end: 20141020
  19. OMNARIS [Concomitant]
     Active Substance: CICLESONIDE
     Route: 045
  20. ACTEMRA [Suspect]
     Active Substance: TOCILIZUMAB
     Dosage: CLINICAL TRIAL 6875
     Route: 042
     Dates: start: 2005
  21. TYLENOL [Concomitant]
     Active Substance: ACETAMINOPHEN

REACTIONS (11)
  - Oropharyngeal pain [Unknown]
  - Arthralgia [Not Recovered/Not Resolved]
  - Weight increased [Unknown]
  - Musculoskeletal stiffness [Recovering/Resolving]
  - Localised infection [Not Recovered/Not Resolved]
  - Joint stiffness [Not Recovered/Not Resolved]
  - Hypotension [Not Recovered/Not Resolved]
  - Nausea [Unknown]
  - Large intestine polyp [Recovered/Resolved]
  - Rhinorrhoea [Unknown]
  - Urinary tract infection [Unknown]

NARRATIVE: CASE EVENT DATE: 20110829
